FAERS Safety Report 9041255 (Version 1)
Quarter: 2013Q1

REPORT INFORMATION
  Report Type: Spontaneous
  Country: US (occurrence: None)
  Receive Date: 20130123
  Receipt Date: 20130123
  Transmission Date: 20140127
  Serious: Yes (Hospitalization)
  Sender: FDA-Public Use
  Company Number: None

PATIENT
  Sex: 0

DRUGS (1)
  1. MEFLOQUINE [Suspect]

REACTIONS (20)
  - Disorientation [None]
  - Hallucination [None]
  - Memory impairment [None]
  - Depression [None]
  - Panic attack [None]
  - Disturbance in attention [None]
  - Thinking abnormal [None]
  - Anxiety [None]
  - Conversion disorder [None]
  - Paranoia [None]
  - Loss of consciousness [None]
  - Convulsion [None]
  - Loss of consciousness [None]
  - Asthenia [None]
  - Diarrhoea [None]
  - Insomnia [None]
  - Headache [None]
  - Gastrointestinal disorder [None]
  - Night sweats [None]
  - Urticaria [None]
